FAERS Safety Report 23431790 (Version 3)
Quarter: 2024Q1

REPORT INFORMATION
  Report Type: Report from Study
  Country: DE (occurrence: DE)
  Receive Date: 20240123
  Receipt Date: 20240315
  Transmission Date: 20240410
  Serious: Yes (Hospitalization)
  Sender: FDA-Public Use
  Company Number: DE-SUN PHARMACEUTICAL INDUSTRIES LTD-2024RR-427932

PATIENT
  Age: 27 Year
  Sex: Female

DRUGS (4)
  1. SONIDEGIB [Suspect]
     Active Substance: SONIDEGIB
     Indication: Medulloblastoma
     Dosage: UNK
     Route: 065
  2. CITALOPRAM ALTERNOVA [Concomitant]
     Indication: Depression
     Dosage: 30 MILLIGRAM, QD
     Route: 048
  3. MODAFINIL EG [Concomitant]
     Indication: Hypersomnia
     Dosage: 100 MILLIGRAM, QD
     Route: 048
     Dates: start: 2021
  4. TAVOR (LORAZEPAM) [Concomitant]
     Active Substance: LORAZEPAM
     Indication: Anxiety
     Dosage: 1.25 MILLIGRAM, AS NECESSARY
     Route: 048
     Dates: start: 20231228

REACTIONS (1)
  - Hydrocephalus [Recovered/Resolved with Sequelae]

NARRATIVE: CASE EVENT DATE: 20240110
